FAERS Safety Report 7488229-X (Version None)
Quarter: 2011Q2

REPORT INFORMATION
  Report Type: 
  Country: None (occurrence: None)
  Receive Date: 20110518
  Receipt Date: 20110506
  Transmission Date: 20111010
  Serious: Yes (Other)
  Sender: FDA-Public Use
  Company Number: JP-ROCHE-777677

PATIENT
  Age: 59 Year
  Sex: Male

DRUGS (6)
  1. CAPECITABINE [Suspect]
     Indication: COLORECTAL CANCER
     Dosage: 1 CYCLE AS XELOX
     Route: 065
  2. LEUCOVORIN CALCIUM [Suspect]
     Indication: COLORECTAL CANCER
     Dosage: 9 CYCLES AS FOLFOX
     Route: 065
  3. OXALIPLATIN [Suspect]
     Indication: COLORECTAL CANCER
     Dosage: 9 CYCLES AS FOLFOX
     Route: 065
  4. FLUOROURACIL [Suspect]
     Indication: COLORECTAL CANCER
     Dosage: 9 CYCLES AS FOLFOX
     Route: 065
  5. OXALIPLATIN [Suspect]
     Dosage: 1 CYCLE AS XELOX
     Route: 065
  6. BEVACIZUMAB [Suspect]
     Indication: COLORECTAL CANCER
     Dosage: 9 CYCLES WITH FOLFOX
     Route: 065

REACTIONS (1)
  - INTERSTITIAL LUNG DISEASE [None]
